FAERS Safety Report 9998086 (Version 1)
Quarter: 2014Q1

REPORT INFORMATION
  Report Type: Spontaneous
  Country: IN (occurrence: IN)
  Receive Date: 20140311
  Receipt Date: 20140311
  Transmission Date: 20141002
  Serious: Yes (Death)
  Sender: FDA-Public Use
  Company Number: IN-BAXTER-2014BAX011487

PATIENT
  Age: 38 Year
  Sex: Male

DRUGS (10)
  1. CIPROFLOXACIN INJECTION IP [Suspect]
     Indication: MYCOBACTERIUM TUBERCULOSIS COMPLEX TEST POSITIVE
     Route: 042
  2. TACROLIMUS [Suspect]
     Indication: IMMUNOSUPPRESSANT DRUG THERAPY
     Route: 065
  3. MYCOPHENOLATE MOFETIL [Suspect]
     Indication: IMMUNOSUPPRESSANT DRUG THERAPY
     Route: 065
  4. MYCOPHENOLATE MOFETIL [Suspect]
     Route: 065
  5. PREDNISOLONE [Suspect]
     Indication: IMMUNOSUPPRESSANT DRUG THERAPY
     Route: 065
  6. AMOXICILLIN+CLAVULANIC ACID [Suspect]
     Indication: STAPHYLOCOCCAL ABSCESS
     Route: 065
  7. PIPERACILLIN PLUS TAZOBACTAM [Suspect]
     Indication: MYCOBACTERIUM TUBERCULOSIS COMPLEX TEST POSITIVE
     Route: 042
  8. METRONIDAZOLE [Suspect]
     Indication: MYCOBACTERIUM TUBERCULOSIS COMPLEX TEST POSITIVE
     Route: 042
  9. AMIKACIN [Suspect]
     Indication: MYCOBACTERIUM TUBERCULOSIS COMPLEX TEST POSITIVE
     Route: 042
  10. HYDROCORTISONE [Suspect]
     Indication: IMMUNOSUPPRESSANT DRUG THERAPY

REACTIONS (1)
  - Septic shock [Fatal]
